FAERS Safety Report 10504821 (Version 2)
Quarter: 2014Q4

REPORT INFORMATION
  Report Type: Spontaneous
  Country: US (occurrence: US)
  Receive Date: 20141008
  Receipt Date: 20141203
  Transmission Date: 20150528
  Serious: No
  Sender: FDA-Public Use
  Company Number: US-EISAI MEDICAL RESEARCH-EC-2014-000528

PATIENT
  Age: 54 Year
  Sex: Female
  Weight: 70 kg

DRUGS (1)
  1. BELVIQ [Suspect]
     Active Substance: LORCASERIN HYDROCHLORIDE
     Indication: WEIGHT DECREASED
     Route: 048
     Dates: start: 20141001

REACTIONS (5)
  - Drug ineffective [Not Recovered/Not Resolved]
  - Dizziness [Recovering/Resolving]
  - Dry mouth [Not Recovered/Not Resolved]
  - Irritability [Not Recovered/Not Resolved]
  - Hot flush [Recovering/Resolving]

NARRATIVE: CASE EVENT DATE: 201410
